FAERS Safety Report 16986191 (Version 1)
Quarter: 2019Q4

REPORT INFORMATION
  Report Type: Spontaneous
  Country: US (occurrence: US)
  Receive Date: 20190918
  Receipt Date: 20190918
  Transmission Date: 20200122
  Serious: Yes (Other)
  Sender: FDA-Public Use
  Company Number: None

PATIENT
  Sex: Female

DRUGS (1)
  1. MYCOPHENOLATE++ 500MG ACCORD HEALTHCARE [Suspect]
     Active Substance: MYCOPHENOLIC ACID
     Indication: RHEUMATOID ARTHRITIS
     Route: 048
     Dates: start: 20170524

REACTIONS (3)
  - Therapy cessation [None]
  - Bronchitis [None]
  - Malaise [None]
